FAERS Safety Report 7051921-5 (Version None)
Quarter: 2010Q4

REPORT INFORMATION
  Report Type: 
  Country: None (occurrence: None)
  Receive Date: 20101018
  Receipt Date: 20101018
  Transmission Date: 20110411
  Serious: Yes (Other)
  Sender: FDA-Public Use
  Company Number: None

PATIENT
  Sex: Female
  Weight: 59.8748 kg

DRUGS (2)
  1. ZYRTEC [Suspect]
     Indication: SEASONAL ALLERGY
     Dosage: 10 MG ONCE PER DAY PO
     Route: 048
  2. ZYRTEC [Suspect]
     Indication: URTICARIA
     Dosage: 10 MG ONCE PER DAY PO
     Route: 048

REACTIONS (5)
  - CONDITION AGGRAVATED [None]
  - DRUG DEPENDENCE [None]
  - HUNGER [None]
  - URTICARIA [None]
  - WEIGHT INCREASED [None]
